FAERS Safety Report 4592736-7 (Version None)
Quarter: 2005Q1

REPORT INFORMATION
  Report Type: 
  Country: None (occurrence: None)
  Receive Date: 20050218
  Receipt Date: 20050203
  Transmission Date: 20050727
  Serious: No
  Sender: FDA-Public Use
  Company Number: 2004SE07198

PATIENT
  Age: 47 Year
  Sex: Male

DRUGS (12)
  1. SEROQUEL [Suspect]
     Indication: BIPOLAR I DISORDER
     Dosage: 100 MG DAILY; PO
     Route: 048
     Dates: start: 20040524, end: 20040525
  2. SEROQUEL [Suspect]
     Indication: BIPOLAR I DISORDER
     Dosage: 200 MG DAILY; PO
     Route: 048
     Dates: start: 20040526, end: 20040526
  3. SEROQUEL [Suspect]
     Indication: BIPOLAR I DISORDER
     Dosage: 300 MG DAILY; PO
     Route: 048
     Dates: start: 20040527, end: 20040527
  4. SEROQUEL [Suspect]
     Indication: BIPOLAR I DISORDER
     Dosage: 400 MG DAILY; PO
     Route: 048
     Dates: start: 20040528, end: 20040528
  5. SEROQUEL [Suspect]
     Indication: BIPOLAR I DISORDER
     Dosage: 500 MG DAILY; PO
     Route: 048
     Dates: start: 20040529, end: 20040529
  6. SEROQUEL [Suspect]
     Indication: BIPOLAR I DISORDER
     Dosage: 600 MG DAILY; PO
     Route: 048
     Dates: start: 20040530, end: 20040623
  7. SEROQUEL [Suspect]
     Indication: BIPOLAR I DISORDER
     Dosage: 500 MG DAILY; PO
     Route: 048
     Dates: start: 20040624, end: 20040628
  8. SEROQUEL [Suspect]
     Indication: BIPOLAR I DISORDER
     Dosage: 400 MG DAILY; PO
     Route: 048
     Dates: start: 20040629, end: 20041020
  9. SEROQUEL [Suspect]
     Indication: BIPOLAR I DISORDER
     Dosage: 600 MG DAILY; PO
     Route: 048
     Dates: start: 20041021, end: 20041022
  10. DEPAKENE [Concomitant]
  11. PROPRANOLOL [Concomitant]
  12. ESTAZOLAM [Concomitant]

REACTIONS (2)
  - LYMPHOMA [None]
  - SOMNOLENCE [None]
